FAERS Safety Report 5759003-7 (Version None)
Quarter: 2008Q2

REPORT INFORMATION
  Report Type: 
  Country: None (occurrence: None)
  Receive Date: 20080604
  Receipt Date: 20080526
  Transmission Date: 20081010
  Serious: Yes (Other)
  Sender: FDA-Public Use
  Company Number: BE-PFIZER INC-2008032698

PATIENT
  Sex: Male
  Weight: 84 kg

DRUGS (6)
  1. XALATAN [Suspect]
     Indication: GLAUCOMA
     Dates: start: 20071001, end: 20080301
  2. SIMVASTATIN [Concomitant]
     Route: 048
  3. TAMBOCOR [Concomitant]
     Route: 048
     Dates: start: 20061201
  4. CARDIOASPIRINE [Concomitant]
     Route: 048
     Dates: start: 20051201
  5. OLMESARTAN MEDOXOMIL [Concomitant]
     Dates: start: 20070501
  6. PERINDOPRIL ERBUMINE [Concomitant]
     Route: 048

REACTIONS (2)
  - ECZEMA [None]
  - EYE LASER SURGERY [None]
